FAERS Safety Report 25884404 (Version 1)
Quarter: 2025Q4

REPORT INFORMATION
  Report Type: Spontaneous
  Country: US (occurrence: None)
  Receive Date: 20251003
  Receipt Date: 20251003
  Transmission Date: 20260118
  Serious: No
  Sender: FDA-CTU
  Company Number: None

PATIENT
  Age: 61 Year
  Sex: Female

DRUGS (6)
  1. KISQALI [Suspect]
     Active Substance: RIBOCICLIB SUCCINATE
     Indication: Breast cancer female
     Dosage: 600MG DAILY ORAL ?
     Route: 048
     Dates: start: 20250813, end: 20250920
  2. ANASTROZOLE [Concomitant]
     Active Substance: ANASTROZOLE
  3. DEXAMETHASONE [Concomitant]
     Active Substance: DEXAMETHASONE
  4. Loperamide  2mg [Concomitant]
  5. ONDANSETRON [Concomitant]
     Active Substance: ONDANSETRON
  6. ACETAMINOPHEN [Concomitant]
     Active Substance: ACETAMINOPHEN

REACTIONS (2)
  - Burning sensation [None]
  - Liver injury [None]

NARRATIVE: CASE EVENT DATE: 20250911
